FAERS Safety Report 9937026 (Version 1)
Quarter: 2014Q1

REPORT INFORMATION
  Report Type: Spontaneous
  Country: US (occurrence: None)
  Receive Date: 20140122
  Receipt Date: 20140122
  Transmission Date: 20141002
  Serious: No
  Sender: FDA-Public Use
  Company Number: AP356-00251-SPO-US

PATIENT
  Age: 68 Year
  Sex: Female

DRUGS (7)
  1. BELVIQ [Suspect]
     Indication: WEIGHT CONTROL
     Route: 048
     Dates: start: 201310, end: 201311
  2. INSULIN (INSULIN) [Concomitant]
  3. SIMVASTATIN (SIMVASTATIN) [Concomitant]
  4. ALBUTEROL (SALBUTAMOL) [Concomitant]
  5. BABY ASPIRIN (ACETYLSALICYLIC ACID) [Concomitant]
  6. LISINOPRIL HYDROCHLOROTHIAZIDE (PRINZIDE /00977901/) [Concomitant]
  7. METOPROLOL (METOPROLOL) [Concomitant]

REACTIONS (2)
  - Dyspnoea [None]
  - Headache [None]
